FAERS Safety Report 5547200-5 (Version None)
Quarter: 2007Q4

REPORT INFORMATION
  Report Type: 
  Country: None (occurrence: None)
  Receive Date: 20071211
  Receipt Date: 20071129
  Transmission Date: 20080405
  Serious: Yes (Other)
  Sender: FDA-Public Use
  Company Number: JP-PFIZER INC-2007101250

PATIENT
  Age: 59 Year
  Sex: Male

DRUGS (2)
  1. HALCION [Suspect]
     Indication: INSOMNIA
     Dosage: DAILY DOSE:.125MG-FREQ:DAILY
     Route: 048
  2. SOLU-MEDROL [Suspect]
     Indication: VERTEBRAL INJURY
     Route: 042

REACTIONS (1)
  - DELIRIUM [None]
